FAERS Safety Report 5814104-X (Version None)
Quarter: 2008Q3

REPORT INFORMATION
  Report Type: 
  Country: None (occurrence: None)
  Receive Date: 20080717
  Receipt Date: 20080708
  Transmission Date: 20090109
  Serious: Yes (Other)
  Sender: FDA-Public Use
  Company Number: ES-PFIZER INC-2008056559

PATIENT
  Age: 58 Year
  Sex: Male

DRUGS (1)
  1. CAVERJECT [Suspect]
     Dates: start: 20080101, end: 20080101

REACTIONS (3)
  - DRUG ADMINISTRATION ERROR [None]
  - FUNGAL INFECTION [None]
  - LYMPHADENOPATHY [None]
